FAERS Safety Report 17164353 (Version 4)
Quarter: 2020Q3

REPORT INFORMATION
  Report Type: Report from Study
  Country: US (occurrence: US)
  Receive Date: 20191217
  Receipt Date: 20200709
  Transmission Date: 20201102
  Serious: No
  Sender: FDA-Public Use
  Company Number: NVSC2019US071666

PATIENT
  Sex: Female

DRUGS (5)
  1. ILARIS [Suspect]
     Active Substance: CANAKINUMAB
     Dosage: 65 MG, QMO
     Route: 058
     Dates: start: 20190708, end: 20200415
  2. IBUPROFEN. [Concomitant]
     Active Substance: IBUPROFEN
     Indication: PRODUCT USED FOR UNKNOWN INDICATION
     Route: 065
  3. ILARIS [Suspect]
     Active Substance: CANAKINUMAB
     Dosage: 70 MG/KG, Q2W
     Route: 058
  4. ILARIS [Suspect]
     Active Substance: CANAKINUMAB
     Indication: JUVENILE IDIOPATHIC ARTHRITIS
     Dosage: 65 MG, Q4W
     Route: 058
     Dates: start: 20190725
  5. NAPROXEN. [Concomitant]
     Active Substance: NAPROXEN
     Indication: PRODUCT USED FOR UNKNOWN INDICATION
     Route: 065

REACTIONS (7)
  - Night sweats [Unknown]
  - Pyrexia [Unknown]
  - Drug ineffective [Unknown]
  - Laboratory test abnormal [Unknown]
  - Wrong technique in product usage process [Unknown]
  - Viral upper respiratory tract infection [Unknown]
  - Incorrect dose administered [Unknown]
